FAERS Safety Report 9832243 (Version 4)
Quarter: 2014Q1

REPORT INFORMATION
  Report Type: Spontaneous
  Country: FR (occurrence: FR)
  Receive Date: 20140121
  Receipt Date: 20140327
  Transmission Date: 20141002
  Serious: Yes (Life-Threatening, Hospitalization, Other)
  Sender: FDA-Public Use
  Company Number: PHHY2014FR006075

PATIENT
  Age: 46 Year
  Sex: Female

DRUGS (2)
  1. GILENYA [Suspect]
     Indication: RELAPSING-REMITTING MULTIPLE SCLEROSIS
     Dosage: 1 DF, QD
     Route: 048
     Dates: start: 20131126, end: 20131204
  2. UVEDOSE [Concomitant]
     Dosage: 1 DF, Q3MO
     Route: 048

REACTIONS (7)
  - Status epilepticus [Recovered/Resolved]
  - Loss of consciousness [Unknown]
  - Tonic clonic movements [Unknown]
  - Clonus [Unknown]
  - Postictal state [Unknown]
  - Incontinence [Unknown]
  - Amnesia [Unknown]
